FAERS Safety Report 21756031 (Version 1)
Quarter: 2022Q4

REPORT INFORMATION
  Report Type: Spontaneous
  Country: US (occurrence: US)
  Receive Date: 20221220
  Receipt Date: 20221220
  Transmission Date: 20230113
  Serious: No
  Sender: FDA-Public Use
  Company Number: US-ELI_LILLY_AND_COMPANY-US202212001054

PATIENT
  Age: 32 Year
  Sex: Male

DRUGS (1)
  1. ATOMOXETINE HYDROCHLORIDE [Suspect]
     Active Substance: ATOMOXETINE HYDROCHLORIDE
     Indication: Product used for unknown indication
     Dosage: 40 MG, UNKNOWN
     Route: 065
     Dates: start: 20221127, end: 20221129

REACTIONS (6)
  - Disturbance in attention [Unknown]
  - Dry eye [Unknown]
  - Dizziness [Unknown]
  - Dysuria [Unknown]
  - Decreased appetite [Unknown]
  - Painful ejaculation [Unknown]

NARRATIVE: CASE EVENT DATE: 20221127
